FAERS Safety Report 18558745 (Version 3)
Quarter: 2020Q4

REPORT INFORMATION
  Report Type: Report from Study
  Country: US (occurrence: US)
  Receive Date: 20201130
  Receipt Date: 20201216
  Transmission Date: 20210114
  Serious: Yes (Other)
  Sender: FDA-Public Use
  Company Number: US-B.I. PHARMACEUTICALS,INC./RIDGEFIELD-2020-BI-064352

PATIENT
  Age: 71 Year
  Sex: Female

DRUGS (2)
  1. HYDROCHLOROTHIAZIDE;LISINOPRIL [Concomitant]
     Active Substance: HYDROCHLOROTHIAZIDE\LISINOPRIL
     Indication: HYPERTENSION
     Dosage: 20/12.5 MG TWO TABLETS IN THE MORNING
     Route: 065
     Dates: start: 20201120
  2. JARDIANCE [Suspect]
     Active Substance: EMPAGLIFLOZIN
     Indication: TYPE 2 DIABETES MELLITUS
     Dosage: 10 MG ONCE A DAY
     Route: 048
     Dates: start: 202011

REACTIONS (8)
  - Abdominal pain lower [Recovered/Resolved]
  - Diplegia [Recovered/Resolved]
  - Arthralgia [Not Recovered/Not Resolved]
  - Vulvovaginal burning sensation [Recovering/Resolving]
  - Genital discomfort [Not Recovered/Not Resolved]
  - Pollakiuria [Unknown]
  - Pelvic pain [Not Recovered/Not Resolved]
  - Dysuria [Unknown]

NARRATIVE: CASE EVENT DATE: 202011
